FAERS Safety Report 7154359-5 (Version None)
Quarter: 2010Q4

REPORT INFORMATION
  Report Type: 
  Country: None (occurrence: None)
  Receive Date: 20101213
  Receipt Date: 20101206
  Transmission Date: 20110411
  Serious: Yes (Death)
  Sender: FDA-Public Use
  Company Number: FR-BAXTER-2010BH029601

PATIENT
  Age: 70 Year
  Sex: Male

DRUGS (1)
  1. HOLOXAN BAXTER [Suspect]
     Indication: LIPOSARCOMA
     Route: 042
     Dates: start: 20060703

REACTIONS (3)
  - ENCEPHALOPATHY [None]
  - RENAL FAILURE ACUTE [None]
  - TOXIC ENCEPHALOPATHY [None]
